FAERS Safety Report 7171349-7 (Version None)
Quarter: 2010Q4

REPORT INFORMATION
  Report Type: 
  Country: None (occurrence: None)
  Receive Date: 20101217
  Receipt Date: 20101215
  Transmission Date: 20110411
  Serious: Yes (Other)
  Sender: FDA-Public Use
  Company Number: GXKR2010DE14162

PATIENT
  Age: 44 Year
  Sex: Male

DRUGS (2)
  1. METRONIDAZOLE [Suspect]
     Indication: PERIODONTITIS
     Route: 048
  2. GALENIC /LIDOCAINE/PRILOCAINE/ [Concomitant]
     Indication: PERIODONTAL DISEASE
     Dosage: 3 GTT, TID
     Route: 004

REACTIONS (2)
  - CARDIOVASCULAR INSUFFICIENCY [None]
  - PALPITATIONS [None]
